FAERS Safety Report 25870944 (Version 1)
Quarter: 2025Q4

REPORT INFORMATION
  Report Type: Other
  Country: EU (occurrence: EU)
  Receive Date: 20251001
  Receipt Date: 20251001
  Transmission Date: 20260117
  Serious: Yes (Other)
  Sender: INCYTE
  Company Number: None

PATIENT
  Age: 66 Year

DRUGS (1)
  1. RUXOLITINIB [Suspect]
     Active Substance: RUXOLITINIB
     Indication: Graft versus host disease
     Dosage: 20 MG, Q24H(20MG/J)

REACTIONS (2)
  - Cytopenia [Not Recovered/Not Resolved]
  - Dyslipidaemia [Not Recovered/Not Resolved]
